FAERS Safety Report 9414767 (Version 3)
Quarter: 2013Q4

REPORT INFORMATION
  Report Type: Spontaneous
  Country: US (occurrence: US)
  Receive Date: 20130723
  Receipt Date: 20131011
  Transmission Date: 20140711
  Serious: Yes (Other)
  Sender: FDA-Public Use
  Company Number: US-PFIZER INC-2013212391

PATIENT
  Age: 32 Year
  Sex: Female

DRUGS (3)
  1. PRISTIQ [Suspect]
     Indication: ANXIETY
     Dosage: 100 MG, UNK
  2. PRISTIQ [Suspect]
     Indication: CONVULSION
  3. PRISTIQ [Suspect]
     Indication: DYSPHEMIA

REACTIONS (4)
  - Convulsion [Unknown]
  - Dysphemia [Unknown]
  - Anxiety [Unknown]
  - Off label use [Unknown]
